FAERS Safety Report 8808899 (Version 1)
Quarter: 2012Q4

REPORT INFORMATION
  Report Type: 
  Country: PR (occurrence: PR)
  Receive Date: 20120926
  Receipt Date: 20120926
  Transmission Date: 20130627
  Serious: No
  Sender: FDA-Public Use
  Company Number: PR-BAYER-2012-099736

PATIENT
  Age: 11 Year
  Sex: Female

DRUGS (1)
  1. CIPRO [Suspect]

REACTIONS (1)
  - Rash [None]
